FAERS Safety Report 25900144 (Version 2)
Quarter: 2025Q4

REPORT INFORMATION
  Report Type: Spontaneous
  Country: AU (occurrence: AU)
  Receive Date: 20251009
  Receipt Date: 20251017
  Transmission Date: 20260118
  Serious: Yes (Other)
  Sender: JAZZ
  Company Number: AU-PHARMAMAR-2025PM000703

PATIENT
  Sex: Male

DRUGS (1)
  1. ZEPZELCA [Suspect]
     Active Substance: LURBINECTEDIN
     Indication: Small cell lung cancer metastatic
     Dosage: 5.9 MILLIGRAM, Q3W
     Dates: start: 20250522

REACTIONS (1)
  - Disease progression [Unknown]
